FAERS Safety Report 9669209 (Version 2)
Quarter: 2014Q2

REPORT INFORMATION
  Report Type: Spontaneous
  Country: DE (occurrence: DE)
  Receive Date: 20131105
  Receipt Date: 20140613
  Transmission Date: 20141212
  Serious: Yes (Hospitalization, Other)
  Sender: FDA-Public Use
  Company Number: DE-JNJFOC-20131100106

PATIENT
  Age: 70 Year
  Sex: Male
  Weight: 84 kg

DRUGS (13)
  1. XARELTO [Suspect]
     Indication: CEREBROVASCULAR ACCIDENT PROPHYLAXIS
     Route: 048
     Dates: end: 201309
  2. XARELTO [Suspect]
     Indication: ATRIAL FIBRILLATION
     Route: 048
     Dates: end: 201309
  3. SIMVASTATIN [Concomitant]
     Route: 065
  4. PANTOZOL [Concomitant]
     Route: 065
  5. JANUVIA [Concomitant]
     Route: 065
  6. METOPROLOL [Concomitant]
     Route: 065
  7. METFORMIN [Concomitant]
     Route: 065
  8. METFORMIN [Concomitant]
     Route: 065
     Dates: start: 20130906
  9. RAMIPRIL [Concomitant]
     Route: 065
  10. HCT [Concomitant]
     Route: 065
  11. FELODIPIN [Concomitant]
     Route: 065
  12. DIGITOXIN [Concomitant]
     Route: 065
  13. LANTUS [Concomitant]
     Route: 065

REACTIONS (1)
  - Drug-induced liver injury [Recovering/Resolving]
